FAERS Safety Report 4399577-4 (Version None)
Quarter: 2004Q3

REPORT INFORMATION
  Report Type: 
  Country: None (occurrence: None)
  Receive Date: 20040716
  Receipt Date: 20040324
  Transmission Date: 20050211
  Serious: Yes (Disabling)
  Sender: FDA-Public Use
  Company Number: CA-MERCK-0403CAN00160

PATIENT
  Age: 41 Year
  Sex: Female
  Weight: 77 kg

DRUGS (2)
  1. PROBUCOL [Concomitant]
     Indication: TYPE IIA HYPERLIPIDAEMIA
     Route: 065
     Dates: start: 19860701, end: 19961101
  2. ZOCOR [Suspect]
     Indication: TYPE IIA HYPERLIPIDAEMIA
     Route: 048
     Dates: start: 19930901

REACTIONS (4)
  - ALOPECIA AREATA [None]
  - ALOPECIA UNIVERSALIS [None]
  - DRUG INEFFECTIVE [None]
  - STRESS SYMPTOMS [None]
